FAERS Safety Report 5697361-2 (Version None)
Quarter: 2008Q2

REPORT INFORMATION
  Report Type: 
  Country: None (occurrence: None)
  Receive Date: 20080408
  Receipt Date: 20080328
  Transmission Date: 20081010
  Serious: Yes (Other)
  Sender: FDA-Public Use
  Company Number: GB-ELI_LILLY_AND_COMPANY-GB200804000758

PATIENT
  Sex: Male

DRUGS (5)
  1. OLANZAPINE [Suspect]
  2. LAMOTRIGINE [Interacting]
  3. LITHIUM CARBONATE [Interacting]
  4. SERTRALINE [Interacting]
  5. GEODON [Interacting]

REACTIONS (3)
  - AGITATION [None]
  - DISORIENTATION [None]
  - DRUG INTERACTION [None]
